FAERS Safety Report 24205357 (Version 1)
Quarter: 2024Q3

REPORT INFORMATION
  Report Type: Report from Study
  Country: US (occurrence: US)
  Receive Date: 20240813
  Receipt Date: 20240813
  Transmission Date: 20241017
  Serious: Yes (Other)
  Sender: ABBVIE
  Company Number: US-ABBVIE-5874322

PATIENT
  Sex: Male

DRUGS (2)
  1. HUMIRA [Suspect]
     Active Substance: ADALIMUMAB
     Indication: Product used for unknown indication
     Route: 058
     Dates: start: 20230117
  2. PREDNISONE [Concomitant]
     Active Substance: PREDNISONE
     Indication: Product used for unknown indication

REACTIONS (7)
  - Iliac vein stenosis [Unknown]
  - Rheumatoid factor positive [Unknown]
  - Muscle contractions involuntary [Unknown]
  - Osteoarthritis [Unknown]
  - Peripheral swelling [Unknown]
  - Weight decreased [Unknown]
  - Crohn^s disease [Unknown]
